FAERS Safety Report 22941995 (Version 3)
Quarter: 2023Q4

REPORT INFORMATION
  Report Type: Spontaneous
  Country: US (occurrence: US)
  Receive Date: 20230914
  Receipt Date: 20231129
  Transmission Date: 20240110
  Serious: No
  Sender: FDA-Public Use
  Company Number: US-002147023-NVSC2023US198272

PATIENT
  Age: 75 Year
  Sex: Female
  Weight: 50.8 kg

DRUGS (1)
  1. LEQVIO [Suspect]
     Active Substance: INCLISIRAN SODIUM
     Indication: Type V hyperlipidaemia
     Dosage: 284 MG, ONCE/SINGLE
     Route: 058
     Dates: start: 20230711, end: 20230711

REACTIONS (2)
  - Musculoskeletal stiffness [Recovered/Resolved]
  - Pain [Recovered/Resolved]

NARRATIVE: CASE EVENT DATE: 20230711
